FAERS Safety Report 5401207-7 (Version None)
Quarter: 2007Q3

REPORT INFORMATION
  Report Type: 
  Country: None (occurrence: None)
  Receive Date: 20070726
  Receipt Date: 20070710
  Transmission Date: 20080115
  Serious: Yes (Hospitalization)
  Sender: FDA-Public Use
  Company Number: DSA_30225_2007

PATIENT
  Age: 69 Year
  Sex: Female

DRUGS (10)
  1. DILTIAZEM HYDROCHLORIDE [Suspect]
     Indication: BLOOD PRESSURE
     Dosage: 240 MG QD
  2. WARFARIN SODIUM [Suspect]
     Dosage: 3 MG QD
     Dates: start: 20061003, end: 20070530
  3. LISINOPRIL [Suspect]
     Indication: BLOOD PRESSURE
     Dosage: 5 MG QD
     Dates: end: 20070530
  4. GLIPIZIDE [Suspect]
     Indication: BLOOD GLUCOSE ABNORMAL
     Dosage: 5 MG BID
  5. AMIODARONE HCL [Suspect]
     Indication: ARRHYTHMIA
     Dosage: 200 MG QD
  6. CLONIDINE HCL [Suspect]
     Indication: BLOOD PRESSURE
     Dosage: 0.1 MG BID
  7. PROTONIX [Concomitant]
  8. VYTORIN [Concomitant]
  9. SYNTHROID [Concomitant]
  10. SPIRONOLACTONE [Concomitant]

REACTIONS (15)
  - ATRIAL FIBRILLATION [None]
  - BLOOD GLUCOSE DECREASED [None]
  - BLOOD THYROID STIMULATING HORMONE INCREASED [None]
  - BRAIN NATRIURETIC PEPTIDE INCREASED [None]
  - FATIGUE [None]
  - HAEMATOCRIT DECREASED [None]
  - HAEMOGLOBIN DECREASED [None]
  - INTERNATIONAL NORMALISED RATIO INCREASED [None]
  - PROTHROMBIN TIME PROLONGED [None]
  - PULMONARY OEDEMA [None]
  - RED BLOOD CELL COUNT DECREASED [None]
  - RENAL FAILURE ACUTE [None]
  - SYNCOPE [None]
  - UNRESPONSIVE TO STIMULI [None]
  - WHITE BLOOD CELL COUNT INCREASED [None]
